FAERS Safety Report 21189758 (Version 2)
Quarter: 2022Q3

REPORT INFORMATION
  Report Type: Spontaneous
  Country: US (occurrence: US)
  Receive Date: 20220809
  Receipt Date: 20220823
  Transmission Date: 20221026
  Serious: Yes (Other)
  Sender: FDA-Public Use
  Company Number: US-PFIZER INC-PV202200038649

PATIENT
  Age: 49 Year
  Sex: Female

DRUGS (2)
  1. TOFACITINIB CITRATE [Suspect]
     Active Substance: TOFACITINIB CITRATE
     Dosage: 11 MG, 1X/DAY (1 TABLET ONCE A DAY)
  2. METHOTREXATE [Concomitant]
     Active Substance: METHOTREXATE

REACTIONS (9)
  - Polymyalgia rheumatica [Unknown]
  - Leukopenia [Unknown]
  - Polyarthritis [Not Recovered/Not Resolved]
  - Blood test abnormal [Unknown]
  - X-ray abnormal [Unknown]
  - Joint space narrowing [Unknown]
  - Arthralgia [Unknown]
  - Condition aggravated [Recovered/Resolved]
  - Viral rash [Unknown]

NARRATIVE: CASE EVENT DATE: 20201201
